FAERS Safety Report 9438667 (Version 1)
Quarter: 2013Q3

REPORT INFORMATION
  Report Type: Other
  Country: JP (occurrence: JP)
  Receive Date: 20130802
  Receipt Date: 20130802
  Transmission Date: 20140515
  Serious: Yes (Death)
  Sender: FDA-Public Use
  Company Number: JP-BRISTOL-MYERS SQUIBB COMPANY-19156074

PATIENT
  Age: 62 Year
  Sex: Female

DRUGS (4)
  1. TAXOL [Suspect]
     Indication: BREAST CANCER
  2. DOXORUBICIN [Suspect]
     Indication: BREAST CANCER
  3. CYCLOPHOSPHAMIDE [Suspect]
     Indication: BREAST CANCER
  4. 5-FLUOROURACIL [Suspect]
     Indication: BREAST CANCER

REACTIONS (1)
  - Myelodysplastic syndrome [Fatal]
